FAERS Safety Report 5920742-6 (Version None)
Quarter: 2008Q4

REPORT INFORMATION
  Report Type: 
  Country: None (occurrence: None)
  Receive Date: 20081016
  Receipt Date: 20080912
  Transmission Date: 20090506
  Serious: No
  Sender: FDA-Public Use
  Company Number: US-BAYER-200833540NA

PATIENT
  Sex: Female

DRUGS (1)
  1. YASMIN [Suspect]
     Indication: DRUG USE FOR UNKNOWN INDICATION
     Route: 048
     Dates: start: 20080829, end: 20080911

REACTIONS (5)
  - ABDOMINAL PAIN [None]
  - CRYING [None]
  - DEPRESSION [None]
  - DIARRHOEA [None]
  - PAIN IN EXTREMITY [None]
